FAERS Safety Report 21273841 (Version 1)
Quarter: 2022Q3

REPORT INFORMATION
  Report Type: Spontaneous
  Country: US (occurrence: US)
  Receive Date: 20220831
  Receipt Date: 20220831
  Transmission Date: 20221026
  Serious: No
  Sender: FDA-Public Use
  Company Number: US-PFIZER INC-202201102845

PATIENT

DRUGS (1)
  1. PAXLOVID [Suspect]
     Active Substance: NIRMATRELVIR\RITONAVIR
     Indication: COVID-19 treatment
     Dosage: 3 DF, 2X/DAY (ONE WE HAD THE DAY TIME AND THE NIGHT TIME AND HAVE 3 PILLS IN EACH PACK AND EACH ONE)
     Dates: start: 20220826

REACTIONS (1)
  - Dysgeusia [Unknown]
